FAERS Safety Report 5844966-1 (Version None)
Quarter: 2008Q3

REPORT INFORMATION
  Report Type: 
  Country: None (occurrence: None)
  Receive Date: 20080814
  Receipt Date: 20080808
  Transmission Date: 20090109
  Serious: Yes (Other)
  Sender: FDA-Public Use
  Company Number: US-CELGENEUS-163-21880-08071227

PATIENT
  Age: 53 Year
  Sex: Male
  Weight: 77 kg

DRUGS (2)
  1. REVLIMID [Suspect]
     Indication: MULTIPLE MYELOMA
     Route: 048
     Dates: start: 20050216, end: 20050419
  2. DEXAMETHASONE TAB [Suspect]
     Indication: MULTIPLE MYELOMA
     Route: 048
     Dates: start: 20050216, end: 20050409

REACTIONS (1)
  - HYPOPHOSPHATAEMIA [None]
